FAERS Safety Report 6882913-4 (Version None)
Quarter: 2010Q3

REPORT INFORMATION
  Report Type: 
  Country: None (occurrence: None)
  Receive Date: 20100727
  Receipt Date: 20100714
  Transmission Date: 20110219
  Serious: Yes (Other)
  Sender: FDA-Public Use
  Company Number: 100009772

PATIENT

DRUGS (4)
  1. CARBAMAZEPINE [Suspect]
  2. CNS DEPRESSANTS [Concomitant]
  3. ANTIHYPERINTENSIVE DRUGS [Concomitant]
  4. ETHANOL [Concomitant]

REACTIONS (2)
  - ACUTE RESPIRATORY FAILURE [None]
  - DRUG TOXICITY [None]
